FAERS Safety Report 8776152 (Version 1)
Quarter: 2012Q4

REPORT INFORMATION
  Report Type: 
  Country: GB (occurrence: GB)
  Receive Date: 20120910
  Receipt Date: 20120910
  Transmission Date: 20130627
  Serious: Yes (Other)
  Sender: FDA-Public Use
  Company Number: GB-GLAXOSMITHKLINE-B0815599A

PATIENT
  Sex: Male

DRUGS (1)
  1. LAMICTAL [Suspect]
     Indication: EPILEPSY
     Route: 048

REACTIONS (5)
  - Convulsion [Recovered/Resolved]
  - Hallucination, auditory [Recovered/Resolved]
  - Hallucination, visual [Recovered/Resolved]
  - Withdrawal syndrome [Recovered/Resolved]
  - Treatment noncompliance [Recovered/Resolved]
